FAERS Safety Report 6477869-2 (Version None)
Quarter: 2009Q4

REPORT INFORMATION
  Report Type: 
  Country: None (occurrence: None)
  Receive Date: 20091203
  Receipt Date: 20091203
  Transmission Date: 20100525
  Serious: No
  Sender: FDA-Public Use
  Company Number: None

PATIENT
  Age: 36 Year
  Sex: Female
  Weight: 61.2356 kg

DRUGS (7)
  1. TETRACYCLINE [Suspect]
     Indication: DERMATITIS
     Dosage: 1 CAPSULE TWICE DAILY PO
     Route: 048
     Dates: start: 20091118, end: 20091130
  2. ALLEGRA D 24 HOUR [Concomitant]
  3. SINGULAIR [Concomitant]
  4. MULTI-VITAMIN [Concomitant]
  5. CRANMAX [Concomitant]
  6. ACIDOPHILUS [Concomitant]
  7. FLAX SEED OIL [Concomitant]

REACTIONS (3)
  - CONTUSION [None]
  - PRURITUS [None]
  - URTICARIA [None]
